FAERS Safety Report 9580013 (Version 5)
Quarter: 2014Q1

REPORT INFORMATION
  Report Type: Report from Study
  Country: DE (occurrence: DE)
  Receive Date: 20131002
  Receipt Date: 20140318
  Transmission Date: 20141002
  Serious: Yes (Hospitalization, Other)
  Sender: FDA-Public Use
  Company Number: DE-ROCHE-1276525

PATIENT
  Sex: Male

DRUGS (13)
  1. RITUXIMAB [Suspect]
     Indication: B-CELL LYMPHOMA
     Dosage: DATE OF MOST RECENT DOSE PRIOR TO SAE: 18/SEP/2013
     Route: 042
     Dates: start: 20130719
  2. PEGFILGRASTIM [Suspect]
     Indication: T-CELL LYMPHOMA
     Route: 058
     Dates: start: 20130727, end: 20131010
  3. DOXORUBICIN [Suspect]
     Indication: T-CELL LYMPHOMA
     Dosage: DATE OF MOST RECENT DOSE PRIOR TO SAE:
     Route: 042
     Dates: start: 20130725, end: 20131008
  4. VINCRISTIN [Suspect]
     Indication: T-CELL LYMPHOMA
     Dosage: DATE OF MOST RECENT DOSE PRIOR TO SAE: 07/OCT/2013
     Route: 042
     Dates: start: 20130725, end: 20131008
  5. PREDNISONE [Suspect]
     Indication: T-CELL LYMPHOMA
     Dosage: DATE OF MOST RECENT DOSE PRIOR TO SAE: 07/OCT/2013
     Route: 048
     Dates: start: 20130717, end: 20131012
  6. CYCLOPHOSPHAMIDE [Suspect]
     Indication: T-CELL LYMPHOMA
     Dosage: DATE OF MOST RECENT DOSE PRIOR TO SAE: 07/OCT/2013
     Route: 042
     Dates: start: 20130725, end: 20131008
  7. MESNA [Concomitant]
     Indication: PROPHYLAXIS
     Route: 048
     Dates: start: 20130725, end: 20131008
  8. GRANISETRON HYDROCHLORIDE [Concomitant]
     Indication: PROPHYLAXIS
     Route: 042
     Dates: start: 20130724, end: 20131008
  9. ACICLOVIR [Concomitant]
     Indication: PROPHYLAXIS
     Route: 048
     Dates: start: 20130724
  10. LEVOFLOXACIN [Concomitant]
     Indication: PROPHYLAXIS
     Route: 048
     Dates: start: 20130729
  11. ACETYLSALICYLIC ACID [Concomitant]
     Indication: PROPHYLAXIS
     Route: 048
  12. LISINOPRIL [Concomitant]
     Indication: HYPERTENSION
     Route: 048
  13. SULFAMETHOXAZOLE/TRIMETHOPRIM [Concomitant]
     Indication: PROPHYLAXIS
     Route: 048
     Dates: start: 20130727

REACTIONS (3)
  - Leukopenia [Recovered/Resolved]
  - General physical health deterioration [Recovered/Resolved]
  - Pulmonary embolism [Recovered/Resolved]
